FAERS Safety Report 20479429 (Version 2)
Quarter: 2022Q1

REPORT INFORMATION
  Report Type: Spontaneous
  Country: JP (occurrence: JP)
  Receive Date: 20220216
  Receipt Date: 20220309
  Transmission Date: 20220423
  Serious: Yes (Other)
  Sender: FDA-Public Use
  Company Number: JP-002147023-NVSJ2022JP002738

PATIENT
  Sex: Female

DRUGS (1)
  1. XOLAIR [Suspect]
     Active Substance: OMALIZUMAB
     Indication: Product used for unknown indication
     Route: 058
     Dates: start: 202201

REACTIONS (2)
  - Haemorrhage [Recovered/Resolved]
  - Device failure [Unknown]

NARRATIVE: CASE EVENT DATE: 20220101
